FAERS Safety Report 5376886-3 (Version None)
Quarter: 2007Q3

REPORT INFORMATION
  Report Type: 
  Country: None (occurrence: None)
  Receive Date: 20070703
  Receipt Date: 20070625
  Transmission Date: 20080115
  Serious: Yes (Hospitalization)
  Sender: FDA-Public Use
  Company Number: FR-ELI_LILLY_AND_COMPANY-FR200701004601

PATIENT
  Age: 69 Year
  Sex: Female
  Weight: 69 kg

DRUGS (5)
  1. FORTEO [Suspect]
     Indication: OSTEOPOROSIS
     Dosage: 20 UG, DAILY (1/D)
     Route: 058
     Dates: start: 20061204
  2. NOVATREX [Concomitant]
     Dosage: 10 MG, WEEKLY (1/W)
     Route: 048
     Dates: start: 20050830
  3. CORTANCYL [Concomitant]
     Dosage: 10 MG, DAILY (1/D)
     Route: 048
     Dates: start: 19990101
  4. CACIT D3 [Concomitant]
     Dosage: 1 D/F, DAILY (1/D)
     Route: 048
     Dates: start: 20061128
  5. ACETAMINOPHEN AND TRAMADOL HCL [Concomitant]
     Dosage: 4 D/F, DAILY (1/D)
     Route: 048
     Dates: start: 20061128

REACTIONS (1)
  - MYOCARDIAL INFARCTION [None]
